FAERS Safety Report 8481987-7 (Version None)
Quarter: 2012Q3

REPORT INFORMATION
  Report Type: 
  Country: None (occurrence: None)
  Receive Date: 20120702
  Receipt Date: 20120625
  Transmission Date: 20120928
  Serious: Yes (Other)
  Sender: FDA-Public Use
  Company Number: PHHY2012JP008937

PATIENT
  Sex: Male
  Weight: 63 kg

DRUGS (11)
  1. PURSENNID [Concomitant]
     Dosage: 24 G, UNK
     Route: 048
  2. FAMOTIDINE [Concomitant]
     Dosage: 20 G, UNK
     Route: 048
     Dates: start: 20111018
  3. LOXOPROFEN [Concomitant]
     Indication: METASTATIC RENAL CELL CARCINOMA
     Dosage: BETWEEN 60 MG TO 180 MG
     Route: 048
     Dates: start: 20111007
  4. AFINITOR [Suspect]
     Indication: METASTATIC RENAL CELL CARCINOMA
     Dosage: 10 MG, DAILY
     Route: 048
     Dates: start: 20111019
  5. OXYCONTIN [Concomitant]
     Indication: METASTATIC RENAL CELL CARCINOMA
     Dosage: BETWEEN 5 MG TO 10 MG
     Route: 048
  6. PROCHLORPERAZINE [Concomitant]
     Indication: METASTATIC RENAL CELL CARCINOMA
     Dosage: 10 MG, UNK
     Route: 048
     Dates: start: 20111101
  7. MAGMITT [Concomitant]
     Dosage: 1980 MG, UNK
     Route: 048
     Dates: start: 20111216
  8. ZOMETA [Concomitant]
     Indication: METASTATIC RENAL CELL CARCINOMA
     Dosage: UNK UKN, UNK
     Dates: start: 20110930
  9. KALIMATE [Concomitant]
     Dosage: 15 MG, UNK
     Route: 048
  10. LAXOBERON [Concomitant]
     Dosage: UNK
     Route: 048
     Dates: start: 20120113, end: 20120113
  11. FERROUS CITRATE [Concomitant]
     Dosage: 100 MG, UNK
     Route: 048
     Dates: start: 20120210

REACTIONS (5)
  - PERICARDIAL EFFUSION [None]
  - PLEURAL EFFUSION [None]
  - C-REACTIVE PROTEIN INCREASED [None]
  - ANAEMIA [None]
  - BLOOD GLUCOSE INCREASED [None]
